FAERS Safety Report 10441886 (Version 1)
Quarter: 2014Q3

REPORT INFORMATION
  Report Type: Report from Study
  Country: US (occurrence: US)
  Receive Date: 20140909
  Receipt Date: 20140909
  Transmission Date: 20150326
  Serious: Yes (Other)
  Sender: FDA-Public Use
  Company Number: US-GILEAD-2014-0114258

PATIENT
  Age: 59 Year
  Sex: Female
  Weight: 90.7 kg

DRUGS (2)
  1. SOFOSBUVIR [Suspect]
     Active Substance: SOFOSBUVIR
     Indication: HEPATITIS C
     Dosage: UNK
     Route: 065
     Dates: start: 20140805
  2. SIMEPREVIR [Suspect]
     Active Substance: SIMEPREVIR
     Indication: HEPATITIS C
     Dosage: 150 MG, QD
     Route: 048
     Dates: start: 20140805

REACTIONS (10)
  - Off label use [Not Recovered/Not Resolved]
  - Insomnia [Not Recovered/Not Resolved]
  - Erythema [Unknown]
  - Muscle spasms [Not Recovered/Not Resolved]
  - Skin swelling [Unknown]
  - Abnormal loss of weight [Recovered/Resolved]
  - Ear pain [Not Recovered/Not Resolved]
  - Abdominal pain [Not Recovered/Not Resolved]
  - Sunburn [Recovering/Resolving]
  - Hyperaesthesia [Unknown]

NARRATIVE: CASE EVENT DATE: 201408
